FAERS Safety Report 15731858 (Version 2)
Quarter: 2019Q2

REPORT INFORMATION
  Report Type: Spontaneous
  Country: US (occurrence: US)
  Receive Date: 20181217
  Receipt Date: 20190530
  Transmission Date: 20190711
  Serious: No
  Sender: FDA-Public Use
  Company Number: US-SA-2018SA343918

PATIENT
  Sex: Male

DRUGS (15)
  1. ROSUVASTATIN CALCIUM. [Concomitant]
     Active Substance: ROSUVASTATIN CALCIUM
  2. DOXEPIN [Concomitant]
     Active Substance: DOXEPIN
  3. HYDROXYZINE PAMOATE. [Concomitant]
     Active Substance: HYDROXYZINE PAMOATE
  4. DUPIXENT [Suspect]
     Active Substance: DUPILUMAB
     Indication: DERMATITIS ATOPIC
     Dosage: 300 MG, QOW
     Route: 058
     Dates: start: 20180401
  5. CLOBETASOL PROPIONATE. [Concomitant]
     Active Substance: CLOBETASOL PROPIONATE
  6. METFORMIN HCL [Concomitant]
     Active Substance: METFORMIN HYDROCHLORIDE
  7. LIDOCAINE. [Concomitant]
     Active Substance: LIDOCAINE
  8. TELMISARTAN. [Concomitant]
     Active Substance: TELMISARTAN
  9. DUPIXENT [Suspect]
     Active Substance: DUPILUMAB
     Dosage: 600 MG, Q3W
     Route: 058
  10. MONTELUKAST SODIUM. [Concomitant]
     Active Substance: MONTELUKAST SODIUM
  11. LINZESS [Concomitant]
     Active Substance: LINACLOTIDE
  12. OLOPATADINE. [Concomitant]
     Active Substance: OLOPATADINE
  13. DIPHENHYDRAMINE. [Concomitant]
     Active Substance: DIPHENHYDRAMINE
  14. OFLOXACIN. [Concomitant]
     Active Substance: OFLOXACIN
  15. CALCIPOTRIENE. [Concomitant]
     Active Substance: CALCIPOTRIENE

REACTIONS (10)
  - Dry eye [Unknown]
  - Pruritus [Unknown]
  - Eyelid margin crusting [Unknown]
  - Product dose omission [Unknown]
  - Product prescribing error [Unknown]
  - Lacrimation increased [Unknown]
  - Vision blurred [Unknown]
  - Conjunctivitis [Unknown]
  - Skin exfoliation [Unknown]
  - Eye discharge [Unknown]
